FAERS Safety Report 24223766 (Version 1)
Quarter: 2024Q3

REPORT INFORMATION
  Report Type: Spontaneous
  Country: US (occurrence: US)
  Receive Date: 20240819
  Receipt Date: 20240819
  Transmission Date: 20241016
  Serious: No
  Sender: NOVARTIS
  Company Number: US-002147023-NVSC2024US164808

PATIENT

DRUGS (8)
  1. CYCLOSPORINE [Suspect]
     Active Substance: CYCLOSPORINE
     Indication: Product used for unknown indication
     Dosage: UNK
     Route: 065
  2. MONTELUKAST [Suspect]
     Active Substance: MONTELUKAST SODIUM
     Indication: Product used for unknown indication
     Dosage: UNK
     Route: 065
  3. PREDNISONE [Suspect]
     Active Substance: PREDNISONE
     Indication: Product used for unknown indication
     Dosage: UNK
     Route: 065
  4. KETOTIFEN [Suspect]
     Active Substance: KETOTIFEN
     Indication: Product used for unknown indication
     Dosage: UNK
     Route: 065
  5. SEMAGLUTIDE [Suspect]
     Active Substance: SEMAGLUTIDE
     Indication: Product used for unknown indication
     Dosage: UNK
     Route: 065
  6. CROMOLYN [Suspect]
     Active Substance: CROMOLYN
     Indication: Product used for unknown indication
     Dosage: UNK
     Route: 065
  7. LUTEOLIN [Suspect]
     Active Substance: LUTEOLIN
     Indication: Product used for unknown indication
     Dosage: UNK
     Route: 065
  8. EPHEDRINE [Suspect]
     Active Substance: EPHEDRINE
     Indication: Product used for unknown indication
     Dosage: UNK
     Route: 065

REACTIONS (15)
  - Male orgasmic disorder [Unknown]
  - Inflammation [Unknown]
  - Hypersensitivity [Unknown]
  - Fatigue [Unknown]
  - Brain fog [Unknown]
  - Arthralgia [Unknown]
  - Pruritus [Unknown]
  - Flat affect [Unknown]
  - Anxiety [Unknown]
  - Inappropriate sinus tachycardia [Unknown]
  - Seborrhoeic dermatitis [Unknown]
  - Chest discomfort [Unknown]
  - Hypopnoea [Unknown]
  - Drug ineffective [Unknown]
  - Drug resistance [Unknown]
